FAERS Safety Report 4338956-8 (Version None)
Quarter: 2004Q2

REPORT INFORMATION
  Report Type: 
  Country: None (occurrence: None)
  Receive Date: 20040409
  Receipt Date: 20040330
  Transmission Date: 20050107
  Serious: Yes (Other)
  Sender: FDA-Public Use
  Company Number: CIP04000451

PATIENT
  Age: 85 Year
  Sex: Female

DRUGS (3)
  1. ACTONEL [Suspect]
     Indication: OSTEOPOROSIS
     Dosage: 35 MG, 1 /WEEK, ORAL
     Route: 048
     Dates: start: 20030501
  2. SYNTHROID [Concomitant]
  3. AZMACORT (TRIAMCINOLINE ACETONIDE) [Concomitant]

REACTIONS (10)
  - ANKLE FRACTURE [None]
  - ARTHRALGIA [None]
  - BONE MARROW OEDEMA [None]
  - BONE SCAN ABNORMAL [None]
  - DIFFICULTY IN WALKING [None]
  - FOOT FRACTURE [None]
  - JOINT EFFUSION [None]
  - NEUROMA [None]
  - PAIN IN EXTREMITY [None]
  - WALKING AID USER [None]
